FAERS Safety Report 13736343 (Version 1)
Quarter: 2017Q3

REPORT INFORMATION
  Report Type: Spontaneous
  Country: AT (occurrence: AT)
  Receive Date: 20170710
  Receipt Date: 20170710
  Transmission Date: 20171127
  Serious: Yes (Death, Hospitalization, Other)
  Sender: FDA-Public Use
  Company Number: AT-ALKEM LABORATORIES LIMITED-AT-ALKEM-2017-00416

PATIENT
  Age: 46 Year
  Sex: Male

DRUGS (12)
  1. LINEZOLID. [Suspect]
     Active Substance: LINEZOLID
     Indication: SYSTEMIC INFLAMMATORY RESPONSE SYNDROME
     Dosage: ON DAY -6 TO 0
  2. PREDNISOLONE. [Suspect]
     Active Substance: PREDNISOLONE
     Indication: ACUTE RESPIRATORY DISTRESS SYNDROME
     Dosage: 50 MG, QD
     Route: 065
  3. CEFEPIME [Suspect]
     Active Substance: CEFEPIME HYDROCHLORIDE
     Indication: ACUTE RESPIRATORY DISTRESS SYNDROME
     Dosage: ON DAY -15 TO -7
     Route: 065
  4. LEVOFLOXACIN. [Suspect]
     Active Substance: LEVOFLOXACIN
     Indication: SYSTEMIC INFLAMMATORY RESPONSE SYNDROME
  5. MEROPENEM. [Suspect]
     Active Substance: MEROPENEM
     Indication: ACUTE RESPIRATORY DISTRESS SYNDROME
     Dosage: ON DAY -6 TO 0
  6. AMOXICILLIN, CLAVULANIC ACID [Suspect]
     Active Substance: AMOXICILLIN\CLAVULANIC ACID
     Indication: SYSTEMIC INFLAMMATORY RESPONSE SYNDROME
  7. PREDNISOLONE. [Suspect]
     Active Substance: PREDNISOLONE
     Indication: SYSTEMIC INFLAMMATORY RESPONSE SYNDROME
  8. LEVOFLOXACIN. [Suspect]
     Active Substance: LEVOFLOXACIN
     Indication: ACUTE RESPIRATORY DISTRESS SYNDROME
     Dosage: ON DAY -14 TO 0
  9. AMOXICILLIN, CLAVULANIC ACID [Suspect]
     Active Substance: AMOXICILLIN\CLAVULANIC ACID
     Indication: ACUTE RESPIRATORY DISTRESS SYNDROME
     Dosage: ON DAY -30 TO -16
  10. LINEZOLID. [Suspect]
     Active Substance: LINEZOLID
     Indication: ACUTE RESPIRATORY DISTRESS SYNDROME
  11. CEFEPIME [Suspect]
     Active Substance: CEFEPIME HYDROCHLORIDE
     Indication: SYSTEMIC INFLAMMATORY RESPONSE SYNDROME
  12. MEROPENEM. [Suspect]
     Active Substance: MEROPENEM
     Indication: SYSTEMIC INFLAMMATORY RESPONSE SYNDROME

REACTIONS (2)
  - Enterocolitis [Fatal]
  - Multiple organ dysfunction syndrome [Fatal]
